FAERS Safety Report 8256400 (Version 2)
Quarter: 2012Q4

REPORT INFORMATION
  Report Type: 
  Country: US (occurrence: US)
  Receive Date: 20111121
  Receipt Date: 20121005
  Transmission Date: 20130627
  Serious: Yes (Hospitalization, Other)
  Sender: FDA-Public Use
  Company Number: US-US-EMD SERONO, INC.-7095516

PATIENT
  Age: 51 Year
  Sex: Female
  Weight: 102 kg

DRUGS (3)
  1. REBIF [Suspect]
     Indication: MULTIPLE SCLEROSIS
     Route: 058
     Dates: start: 20090429
  2. TYLENOL [Concomitant]
     Indication: ARTHRALGIA
  3. METOPROLOL [Concomitant]
     Indication: HYPERTENSION
     Route: 048

REACTIONS (7)
  - Intervertebral disc degeneration [Recovered/Resolved]
  - Nerve compression [Recovered/Resolved]
  - Arthroscopy [Unknown]
  - Back injury [Recovered/Resolved]
  - Fall [Recovered/Resolved]
  - Multiple sclerosis relapse [Recovered/Resolved]
  - Injection site erythema [Unknown]
